FAERS Safety Report 23738912 (Version 2)
Quarter: 2024Q2

REPORT INFORMATION
  Report Type: Report from Study
  Country: US (occurrence: US)
  Receive Date: 20240413
  Receipt Date: 20240507
  Transmission Date: 20240716
  Serious: Yes (Other)
  Sender: FDA-Public Use
  Company Number: US-ABBVIE-5713104

PATIENT
  Sex: Female

DRUGS (1)
  1. HUMIRA [Suspect]
     Active Substance: ADALIMUMAB
     Indication: Rheumatoid arthritis
     Dosage: FORM STRENGTH: 40 MG
     Route: 058
     Dates: start: 20220513

REACTIONS (5)
  - Spinal pain [Not Recovered/Not Resolved]
  - Spondylitis [Unknown]
  - Spinal disorder [Unknown]
  - Peripheral swelling [Recovered/Resolved]
  - Osteoarthritis [Unknown]
